FAERS Safety Report 9101701 (Version 1)
Quarter: 2013Q1

REPORT INFORMATION
  Report Type: Spontaneous
  Country: US (occurrence: US)
  Receive Date: 20130218
  Receipt Date: 20130218
  Transmission Date: 20140127
  Serious: Yes (Death, Other)
  Sender: FDA-Public Use
  Company Number: US-COVIDIEN/TYCO HEALTHCARE/MALLINCKRODT-T201300409

PATIENT
  Age: 2 Year
  Sex: Female

DRUGS (1)
  1. METHADOSE [Suspect]
     Dosage: UNK
     Route: 048

REACTIONS (8)
  - Toxicity to various agents [Fatal]
  - Brain death [Fatal]
  - Brain herniation [Unknown]
  - Subarachnoid haemorrhage [Unknown]
  - Brain oedema [Unknown]
  - Hypoxic-ischaemic encephalopathy [Unknown]
  - Cell death [Unknown]
  - Cranial sutures widening [Unknown]
